FAERS Safety Report 8003945-9 (Version None)
Quarter: 2011Q4

REPORT INFORMATION
  Report Type: 
  Country: None (occurrence: None)
  Receive Date: 20111222
  Receipt Date: 20111213
  Transmission Date: 20120403
  Serious: Yes (Hospitalization)
  Sender: FDA-Public Use
  Company Number: FR-RB-035614-11

PATIENT
  Sex: Male

DRUGS (1)
  1. SUBUTEX [Suspect]
     Indication: PRODUCT USED FOR UNKNOWN INDICATION
     Dosage: 7 MG DAILY
     Route: 063
     Dates: start: 20110101

REACTIONS (3)
  - EXPOSURE DURING BREAST FEEDING [None]
  - APNOEA [None]
  - BRONCHIOLITIS [None]
